FAERS Safety Report 24915013 (Version 1)
Quarter: 2025Q1

REPORT INFORMATION
  Report Type: Spontaneous
  Country: LV (occurrence: LV)
  Receive Date: 20250203
  Receipt Date: 20250203
  Transmission Date: 20250409
  Serious: Yes (Death, Hospitalization, Other)
  Sender: MERCK
  Company Number: LV-009507513-2501LVA010592

PATIENT
  Age: 61 Year
  Sex: Male

DRUGS (2)
  1. KEYTRUDA [Suspect]
     Active Substance: PEMBROLIZUMAB
     Indication: Squamous cell carcinoma of lung
     Dates: start: 20241004
  2. DOCETAXEL [Suspect]
     Active Substance: DOCETAXEL
     Indication: Squamous cell carcinoma of lung
     Dates: start: 20241110

REACTIONS (6)
  - Death [Fatal]
  - Tubulointerstitial nephritis [Unknown]
  - Colitis [Recovered/Resolved]
  - Haemodialysis [Unknown]
  - Living alone [Unknown]
  - Product use issue [Unknown]

NARRATIVE: CASE EVENT DATE: 20240101
